FAERS Safety Report 13963249 (Version 3)
Quarter: 2019Q2

REPORT INFORMATION
  Report Type: Spontaneous
  Country: US (occurrence: US)
  Receive Date: 20170913
  Receipt Date: 20190503
  Transmission Date: 20190711
  Serious: No
  Sender: FDA-Public Use
  Company Number: US-PFIZER INC-2017393129

PATIENT
  Age: 65 Year
  Sex: Male

DRUGS (1)
  1. CELEBREX [Suspect]
     Active Substance: CELECOXIB
     Indication: BACK PAIN
     Dosage: 200 MG, 1X/DAY
     Route: 048

REACTIONS (3)
  - Migraine [Unknown]
  - Musculoskeletal discomfort [Unknown]
  - Product dose omission [Unknown]
